FAERS Safety Report 4830869-8 (Version None)
Quarter: 2005Q4

REPORT INFORMATION
  Report Type: 
  Country: None (occurrence: None)
  Receive Date: 20051117
  Receipt Date: 20050805
  Transmission Date: 20060501
  Serious: Yes (Hospitalization)
  Sender: FDA-Public Use
  Company Number: GB-BOEHRINGER INGELHEIM PHARMACEUTICALS, INC.-2005-UK-02369UK

PATIENT
  Age: 79 Year
  Sex: Male

DRUGS (7)
  1. ATROVENT [Suspect]
     Indication: CHRONIC OBSTRUCTIVE PULMONARY DISEASE
  2. SERETIDE [Concomitant]
  3. OMEPRAZOLE [Concomitant]
  4. SIMVADOR [Concomitant]
  5. RAMIPRIL [Concomitant]
  6. SALBUTAMOL [Concomitant]
  7. FRUSEMIDE [Concomitant]

REACTIONS (1)
  - CHRONIC OBSTRUCTIVE PULMONARY DISEASE [None]
